FAERS Safety Report 12915379 (Version 1)
Quarter: 2016Q4

REPORT INFORMATION
  Report Type: Spontaneous
  Country: US (occurrence: US)
  Receive Date: 20161106
  Receipt Date: 20161106
  Transmission Date: 20170207
  Serious: No
  Sender: FDA-Public Use
  Company Number: US-RELYPSA-RLY2016002781

PATIENT
  Sex: Female

DRUGS (12)
  1. PANTOPRAZOLE [Concomitant]
     Active Substance: PANTOPRAZOLE SODIUM
  2. ATORVASTATIN [Concomitant]
     Active Substance: ATORVASTATIN
  3. VELTASSA [Suspect]
     Active Substance: PATIROMER
     Indication: HYPERKALAEMIA
     Dosage: 8.4 G, QD
     Route: 048
     Dates: start: 20160610
  4. HEMOCYTE [Concomitant]
  5. NOVOLOG [Concomitant]
     Active Substance: INSULIN ASPART
  6. HUMULIN NOS [Concomitant]
     Active Substance: INSULIN HUMAN
  7. LOSARTAN. [Concomitant]
     Active Substance: LOSARTAN
  8. NIFEDIPINE. [Concomitant]
     Active Substance: NIFEDIPINE
  9. VITAMIN D                          /00107901/ [Concomitant]
     Active Substance: ERGOCALCIFEROL
  10. TRADJENTA [Concomitant]
     Active Substance: LINAGLIPTIN
  11. GABAPENTIN. [Concomitant]
     Active Substance: GABAPENTIN
  12. TRAMADOL. [Concomitant]
     Active Substance: TRAMADOL

REACTIONS (4)
  - Pruritus [Unknown]
  - Muscle spasms [Unknown]
  - Constipation [Unknown]
  - Abdominal discomfort [Unknown]

NARRATIVE: CASE EVENT DATE: 2016
